FAERS Safety Report 23219698 (Version 1)
Quarter: 2023Q4

REPORT INFORMATION
  Report Type: Spontaneous
  Country: US (occurrence: US)
  Receive Date: 20231122
  Receipt Date: 20231122
  Transmission Date: 20240109
  Serious: No
  Sender: FDA-Public Use
  Company Number: US-TEVA-2023-US-2946495

PATIENT
  Age: 71 Year
  Sex: Male

DRUGS (1)
  1. BUPRENORPHINE [Suspect]
     Active Substance: BUPRENORPHINE
     Indication: Analgesic therapy
     Dosage: 7.5 MCG/HOUR
     Route: 062

REACTIONS (3)
  - Application site pruritus [Unknown]
  - Incorrect dose administered by device [Unknown]
  - Product adhesion issue [Unknown]
